FAERS Safety Report 11177681 (Version 2)
Quarter: 2015Q3

REPORT INFORMATION
  Report Type: Spontaneous
  Country: US (occurrence: US)
  Receive Date: 20150610
  Receipt Date: 20150720
  Transmission Date: 20151125
  Serious: No
  Sender: FDA-Public Use
  Company Number: US-PFIZER INC-2015190921

PATIENT
  Age: 18 Year
  Sex: Male

DRUGS (2)
  1. ZYVOX [Suspect]
     Active Substance: LINEZOLID
     Indication: CELLULITIS STAPHYLOCOCCAL
     Dosage: UNK
     Route: 048
  2. FISH OIL KIRKLAND [Interacting]
     Active Substance: FISH OIL
     Dosage: 1000 MG, UNK

REACTIONS (1)
  - Drug interaction [Unknown]
